FAERS Safety Report 6445358-7 (Version None)
Quarter: 2009Q4

REPORT INFORMATION
  Report Type: 
  Country: None (occurrence: None)
  Receive Date: 20091118
  Receipt Date: 20091116
  Transmission Date: 20100525
  Serious: Yes (Life-Threatening, Hospitalization)
  Sender: FDA-Public Use
  Company Number: JP-ABBOTT-09P-087-0606539-00

PATIENT
  Sex: Female
  Weight: 59 kg

DRUGS (7)
  1. HUMIRA [Suspect]
     Indication: RHEUMATOID ARTHRITIS
     Route: 058
     Dates: start: 20080701, end: 20090901
  2. TACROLIMUS HYDRATE [Suspect]
     Indication: RHEUMATOID ARTHRITIS
     Dosage: DAILY
     Route: 048
     Dates: start: 20080909, end: 20090119
  3. TACROLIMUS HYDRATE [Suspect]
     Dosage: DAILY
     Route: 048
     Dates: start: 20090120, end: 20091023
  4. PREDNISOLONE [Concomitant]
     Indication: RHEUMATOID ARTHRITIS
     Dosage: DAILY
     Route: 048
     Dates: start: 20080308, end: 20090706
  5. PREDNISOLONE [Concomitant]
     Dosage: DAILY
     Route: 048
     Dates: start: 20090707, end: 20091023
  6. PREDNISOLONE [Concomitant]
     Dosage: DAILY
     Route: 048
     Dates: start: 20091024, end: 20091026
  7. PREDNISOLONE [Concomitant]
     Dosage: DAILY
     Dates: start: 20091027

REACTIONS (15)
  - ANAEMIA [None]
  - ASTHENIA [None]
  - BLOOD BETA-D-GLUCAN INCREASED [None]
  - DECREASED APPETITE [None]
  - DEHYDRATION [None]
  - DYSPHAGIA [None]
  - FUNGAEMIA [None]
  - IRON DEFICIENCY ANAEMIA [None]
  - MALNUTRITION [None]
  - NEPHROGENIC ANAEMIA [None]
  - NEPHROLITHIASIS [None]
  - PYREXIA [None]
  - RENAL FAILURE [None]
  - RENAL IMPAIRMENT [None]
  - WEIGHT DECREASED [None]
